FAERS Safety Report 5034578-4 (Version None)
Quarter: 2006Q2

REPORT INFORMATION
  Report Type: 
  Country: None (occurrence: None)
  Receive Date: 20060621
  Receipt Date: 20060606
  Transmission Date: 20061013
  Serious: Yes (Death)
  Sender: FDA-Public Use
  Company Number: 2006CG001605

PATIENT
  Age: 5 Day
  Sex: Female

DRUGS (4)
  1. CUROSURF [Suspect]
     Indication: NEONATAL RESPIRATORY DISTRESS SYNDROME
     Dosage: 72 MILLIGRAMS; SUSPENSION; INTRATRACHAEL
     Route: 039
     Dates: start: 20060530, end: 20060530
  2. AMPICILLIN [Concomitant]
  3. GENTAMICIN [Concomitant]
  4. FLUCONAZOLE [Concomitant]

REACTIONS (3)
  - BRADYCARDIA [None]
  - METABOLIC ACIDOSIS [None]
  - PNEUMOTHORAX [None]
